FAERS Safety Report 25852904 (Version 1)
Quarter: 2025Q3

REPORT INFORMATION
  Report Type: Spontaneous
  Country: CA (occurrence: CA)
  Receive Date: 20250926
  Receipt Date: 20250926
  Transmission Date: 20251020
  Serious: Yes (Other)
  Sender: PFIZER
  Company Number: CA-PFIZER INC-202500150653

PATIENT
  Age: 34 Year
  Sex: Female
  Weight: 120 kg

DRUGS (5)
  1. IXIFI [Suspect]
     Active Substance: INFLIXIMAB-QBTX
     Indication: Crohn^s disease
     Route: 042
     Dates: start: 20250611
  2. IXIFI [Suspect]
     Active Substance: INFLIXIMAB-QBTX
     Route: 042
     Dates: start: 20250724
  3. IXIFI [Suspect]
     Active Substance: INFLIXIMAB-QBTX
     Route: 042
     Dates: start: 20250902
  4. PREDNISONE [Concomitant]
     Active Substance: PREDNISONE
  5. ACETAMINOPHEN [Concomitant]
     Active Substance: ACETAMINOPHEN
     Indication: Premedication
     Dates: start: 20250902, end: 20250902

REACTIONS (11)
  - Polyarthritis [Unknown]
  - Condition aggravated [Recovering/Resolving]
  - Erythema [Recovering/Resolving]
  - Skin lesion [Recovering/Resolving]
  - Peripheral swelling [Recovering/Resolving]
  - Rash [Recovering/Resolving]
  - Abscess [Recovered/Resolved]
  - Erythema [Recovering/Resolving]
  - Pruritus [Recovered/Resolved]
  - Off label use [Unknown]
  - Product use issue [Unknown]

NARRATIVE: CASE EVENT DATE: 20250101
